FAERS Safety Report 13784385 (Version 2)
Quarter: 2017Q3

REPORT INFORMATION
  Report Type: Report from Study
  Country: CA (occurrence: CA)
  Receive Date: 20170724
  Receipt Date: 20170810
  Transmission Date: 20171127
  Serious: Yes (Hospitalization)
  Sender: FDA-Public Use
  Company Number: CA-HLSUS-2017-CA-000682

PATIENT
  Age: 67 Year
  Sex: Female

DRUGS (5)
  1. CLOZARIL [Suspect]
     Active Substance: CLOZAPINE
     Indication: SCHIZOPHRENIA
     Dosage: 100MG HS
     Route: 048
     Dates: start: 19950807
  2. DILAUDID [Concomitant]
     Active Substance: HYDROMORPHONE HYDROCHLORIDE
  3. RIVOTRIL [Concomitant]
     Active Substance: CLONAZEPAM
  4. LAMICTAL [Concomitant]
     Active Substance: LAMOTRIGINE
  5. COLASE [Concomitant]

REACTIONS (2)
  - Benign ovarian tumour [Unknown]
  - Intestinal obstruction [Unknown]

NARRATIVE: CASE EVENT DATE: 20170705
